FAERS Safety Report 8946905 (Version 1)
Quarter: 2012Q4

REPORT INFORMATION
  Report Type: 
  Country: JP (occurrence: JP)
  Receive Date: 20121205
  Receipt Date: 20121205
  Transmission Date: 20130627
  Serious: Yes (Life-Threatening)
  Sender: FDA-Public Use
  Company Number: JP-GLAXOSMITHKLINE-B0849543A

PATIENT
  Age: 64 Year
  Sex: Male
  Weight: 59 kg

DRUGS (8)
  1. ALKERAN [Suspect]
     Indication: STEM CELL TRANSPLANT
     Dosage: 230MG Per day
     Route: 042
     Dates: start: 20121113, end: 20121113
  2. AMLODIN [Concomitant]
     Route: 048
  3. GASTER [Concomitant]
     Route: 048
  4. PLAVIX [Concomitant]
     Route: 048
  5. ZOVIRAX [Concomitant]
     Route: 048
  6. URSO [Concomitant]
     Route: 048
  7. CYMERIN [Concomitant]
     Route: 042
  8. CYLOCIDE [Concomitant]
     Route: 042

REACTIONS (1)
  - Convulsion [Recovering/Resolving]
